FAERS Safety Report 19480829 (Version 5)
Quarter: 2024Q3

REPORT INFORMATION
  Report Type: Spontaneous
  Country: RO (occurrence: RO)
  Receive Date: 20210701
  Receipt Date: 20240921
  Transmission Date: 20241017
  Serious: Yes (Hospitalization, Other)
  Sender: AUROBINDO
  Company Number: RO-AUROBINDO-AUR-APL-2021-026304

PATIENT
  Age: 24 Year
  Sex: Female

DRUGS (30)
  1. AMISULPRIDE [Suspect]
     Active Substance: AMISULPRIDE
     Indication: Agitation
     Dosage: 200 MILLIGRAM, ONCE A DAY
     Route: 065
  2. AMISULPRIDE [Suspect]
     Active Substance: AMISULPRIDE
     Indication: Delirium
  3. AMISULPRIDE [Suspect]
     Active Substance: AMISULPRIDE
     Indication: Behaviour disorder
  4. AMISULPRIDE [Suspect]
     Active Substance: AMISULPRIDE
     Indication: Psychotic disorder
  5. ESCITALOPRAM [Suspect]
     Active Substance: ESCITALOPRAM OXALATE
     Indication: Depressed mood
     Dosage: 10 MILLIGRAM, ONCE A DAY
     Route: 065
  6. ESCITALOPRAM [Suspect]
     Active Substance: ESCITALOPRAM OXALATE
     Indication: Hallucination, auditory
  7. ESCITALOPRAM [Suspect]
     Active Substance: ESCITALOPRAM OXALATE
     Indication: Affect lability
  8. GABAPENTIN [Suspect]
     Active Substance: GABAPENTIN
     Indication: Hallucination, auditory
     Dosage: 300 MILLIGRAM, ONCE A DAY
     Route: 065
  9. GABAPENTIN [Suspect]
     Active Substance: GABAPENTIN
     Indication: Depressed mood
     Dosage: 100 MILLIGRAM, DAILY
     Route: 065
  10. GABAPENTIN [Suspect]
     Active Substance: GABAPENTIN
     Indication: Affect lability
  11. GABAPENTIN [Suspect]
     Active Substance: GABAPENTIN
     Indication: Psychotic disorder
  12. OLANZAPINE [Suspect]
     Active Substance: OLANZAPINE
     Indication: Hallucination, auditory
     Dosage: 5 MILLIGRAM, ONCE A DAY
     Route: 065
  13. OLANZAPINE [Suspect]
     Active Substance: OLANZAPINE
     Indication: Depressed mood
     Dosage: 7.5 MILLIGRAM, ONCE A DAY
     Route: 065
  14. OLANZAPINE [Suspect]
     Active Substance: OLANZAPINE
     Indication: Affect lability
     Dosage: 10 MILLIGRAM, ONCE A DAY
     Route: 065
  15. OLANZAPINE [Suspect]
     Active Substance: OLANZAPINE
     Indication: Agitation
  16. OLANZAPINE [Suspect]
     Active Substance: OLANZAPINE
     Indication: Behaviour disorder
  17. OLANZAPINE [Suspect]
     Active Substance: OLANZAPINE
     Indication: Delirium
  18. OLANZAPINE [Suspect]
     Active Substance: OLANZAPINE
     Indication: Psychotic disorder
  19. PREGABALIN [Suspect]
     Active Substance: PREGABALIN
     Indication: Agitation
     Dosage: 225 MILLIGRAM, ONCE A DAY
     Route: 065
  20. PREGABALIN [Suspect]
     Active Substance: PREGABALIN
     Indication: Delirium
  21. CIPRALEX [Suspect]
     Active Substance: ESCITALOPRAM OXALATE
     Indication: Depression
     Dosage: 10 MILLIGRAM, DAILY
     Route: 065
  22. QUETIAPINE [Suspect]
     Active Substance: QUETIAPINE
     Indication: Depression
     Dosage: 100 MILLIGRAM, ONCE A DAY
     Route: 065
  23. QUETIAPINE [Suspect]
     Active Substance: QUETIAPINE
     Indication: Psychotic disorder
     Dosage: 300 MILLIGRAM, DAILY
     Route: 065
  24. ZUCLOPENTHIXOL [Suspect]
     Active Substance: ZUCLOPENTHIXOL
     Indication: Behaviour disorder
     Dosage: 1 VIAL 3 DOSES
     Route: 030
  25. ZUCLOPENTHIXOL [Suspect]
     Active Substance: ZUCLOPENTHIXOL
     Indication: Delirium
  26. ZUCLOPENTHIXOL [Suspect]
     Active Substance: ZUCLOPENTHIXOL
     Indication: Agitation
  27. CHOLECALCIFEROL [Concomitant]
     Active Substance: CHOLECALCIFEROL
     Indication: Relapsing-remitting multiple sclerosis
     Dosage: UNK
     Route: 065
  28. CHOLECALCIFEROL [Concomitant]
     Active Substance: CHOLECALCIFEROL
     Dosage: 50000 INTERNATIONAL UNIT, EVERY WEEK
     Route: 065
  29. OLANZAPINE [Concomitant]
     Active Substance: OLANZAPINE
     Indication: Product used for unknown indication
     Dosage: UNK
     Route: 065
  30. PREGABALIN [Concomitant]
     Active Substance: PREGABALIN
     Indication: Dysphoria
     Dosage: UNK
     Route: 065

REACTIONS (5)
  - Hyperprolactinaemia [Recovering/Resolving]
  - Treatment noncompliance [Unknown]
  - Therapeutic product effect incomplete [Unknown]
  - Therapy interrupted [Unknown]
  - Drug ineffective [Recovering/Resolving]

NARRATIVE: CASE EVENT DATE: 20201124
